FAERS Safety Report 4662799-9 (Version None)
Quarter: 2005Q2

REPORT INFORMATION
  Report Type: 
  Country: None (occurrence: None)
  Receive Date: 20050512
  Receipt Date: 20050420
  Transmission Date: 20051028
  Serious: Yes (Life-Threatening, Hospitalization)
  Sender: FDA-Public Use
  Company Number: JP_030601208

PATIENT
  Age: 69 Year
  Sex: Female
  Weight: 34 kg

DRUGS (9)
  1. ZYPREXA [Suspect]
     Indication: DELUSION
     Dosage: 2.5 MG DAY
     Dates: start: 20020708, end: 20030413
  2. ZYPREXA [Suspect]
     Indication: HALLUCINATION
     Dosage: 2.5 MG DAY
     Dates: start: 20020708, end: 20030413
  3. PERMAX [Suspect]
     Indication: PARKINSON'S DISEASE
     Dosage: 750 UG DAY
     Dates: start: 20021217
  4. SYMMETREL [Concomitant]
  5. LEVODOPA BENSERAZODE HYDROCHLO [Concomitant]
  6. FLUVOXAMINE MALEATE [Concomitant]
  7. LEVOTHYROXINE SODIUM [Concomitant]
  8. PANTOSIN (PANTETHINE) [Concomitant]
  9. MAGNESIUM OXIDE [Concomitant]

REACTIONS (16)
  - AUTONOMIC NEUROPATHY [None]
  - BODY TEMPERATURE FLUCTUATION [None]
  - CONDITION AGGRAVATED [None]
  - DYSTONIA [None]
  - EXTRAPYRAMIDAL DISORDER [None]
  - HYPOKALAEMIA [None]
  - ON AND OFF PHENOMENON [None]
  - PSYCHIATRIC SYMPTOM [None]
  - PYREXIA [None]
  - RESPIRATORY ARREST [None]
  - RESPIRATORY DISORDER [None]
  - RESPIRATORY FAILURE [None]
  - SOLILOQUY [None]
  - SUICIDAL IDEATION [None]
  - TEMPERATURE REGULATION DISORDER [None]
  - VOCAL CORD DISORDER [None]
